FAERS Safety Report 7322316 (Version 4)
Quarter: 2018Q1

REPORT INFORMATION
  Report Type: Spontaneous
  Country: HK (occurrence: HK)
  Receive Date: 20100317
  Receipt Date: 20180103
  Transmission Date: 20180509
  Serious: Yes (Hospitalization)
  Sender: FDA-Public Use
  Company Number: HK-BAYER-201017908GPV

PATIENT
  Age: 20 Year
  Sex: Female

DRUGS (1)
  1. BETAFERON [Suspect]
     Active Substance: INTERFERON BETA-1B
     Indication: MULTIPLE SCLEROSIS
     Dosage: 8 MIU, QOD
     Route: 058
     Dates: start: 20090921, end: 20100304

REACTIONS (2)
  - Hypoaesthesia [Not Recovered/Not Resolved]
  - Unevaluable event [None]

NARRATIVE: CASE EVENT DATE: 20100303
